FAERS Safety Report 7576207-1 (Version None)
Quarter: 2011Q2

REPORT INFORMATION
  Report Type: 
  Country: None (occurrence: None)
  Receive Date: 20110628
  Receipt Date: 20110111
  Transmission Date: 20111010
  Serious: Yes (Hospitalization, Other)
  Sender: FDA-Public Use
  Company Number: US-BAYER-201012340NA

PATIENT
  Age: 16 Year
  Sex: Female
  Weight: 99.773 kg

DRUGS (6)
  1. YASMIN [Suspect]
     Indication: MENSTRUAL CYCLE MANAGEMENT
  2. METFORMIN HCL [Concomitant]
     Indication: POLYCYSTIC OVARIES
     Dosage: UNK UNK, BID
     Dates: start: 20050701
  3. CLOTRIM [Concomitant]
     Indication: FUNGAL INFECTION
     Dosage: UNK
     Dates: start: 20060701, end: 20060901
  4. HYDROCODONE [Concomitant]
  5. YASMIN [Suspect]
     Indication: MENSTRUAL DISORDER
     Dosage: 1 DF (DAILY DOSE), QD, ORAL
     Route: 048
     Dates: start: 20050711, end: 20060924
  6. CEPHALEXIN [Concomitant]

REACTIONS (7)
  - DYSPNOEA [None]
  - PULMONARY EMBOLISM [None]
  - CHOLECYSTITIS CHRONIC [None]
  - CHOLELITHIASIS [None]
  - PULMONARY ARTERIAL HYPERTENSION [None]
  - ABDOMINAL PAIN UPPER [None]
  - ABDOMINAL PAIN [None]
